FAERS Safety Report 25972332 (Version 2)
Quarter: 2025Q4

REPORT INFORMATION
  Report Type: Spontaneous
  Country: RU (occurrence: RU)
  Receive Date: 20251029
  Receipt Date: 20251031
  Transmission Date: 20260118
  Serious: Yes (Death, Hospitalization)
  Sender: BOEHRINGER INGELHEIM
  Company Number: RU-BoehringerIngelheim-2025-BI-103915

PATIENT
  Age: 71 Year
  Sex: Male
  Weight: 79 kg

DRUGS (1)
  1. NINTEDANIB [Suspect]
     Active Substance: NINTEDANIB
     Indication: Interstitial lung disease
     Dates: start: 202501, end: 20250210

REACTIONS (3)
  - Multiple organ dysfunction syndrome [Fatal]
  - Immune system disorder [Unknown]
  - Condition aggravated [Unknown]

NARRATIVE: CASE EVENT DATE: 20250201
